FAERS Safety Report 19458124 (Version 2)
Quarter: 2021Q3

REPORT INFORMATION
  Report Type: Spontaneous
  Country: CH (occurrence: CH)
  Receive Date: 20210624
  Receipt Date: 20210708
  Transmission Date: 20211014
  Serious: Yes (Other)
  Sender: FDA-Public Use
  Company Number: CH-AMGEN-CHESP2021092931

PATIENT

DRUGS (2)
  1. IMLYGIC [Suspect]
     Active Substance: TALIMOGENE LAHERPAREPVEC
     Dosage: UNK UNK, Q2WK (UPTO 4 ML X 10^8 PFU/ML)
     Route: 026
  2. IMLYGIC [Suspect]
     Active Substance: TALIMOGENE LAHERPAREPVEC
     Indication: B-CELL LYMPHOMA
     Dosage: UNK (UPTO 4 ML X 10^8 PFU/ML)
     Route: 026

REACTIONS (6)
  - Folliculitis [Unknown]
  - Cough [Unknown]
  - Hypokalaemia [Unknown]
  - Therapy partial responder [Unknown]
  - Hidradenitis [Unknown]
  - Influenza like illness [Unknown]
